FAERS Safety Report 22372884 (Version 1)
Quarter: 2023Q2

REPORT INFORMATION
  Report Type: Spontaneous
  Country: GB (occurrence: GB)
  Receive Date: 20230526
  Receipt Date: 20230526
  Transmission Date: 20230721
  Serious: Yes (Disabling, Other)
  Sender: FDA-Public Use
  Company Number: None

PATIENT
  Age: 77 Year
  Sex: Female

DRUGS (1)
  1. NAPROXEN [Suspect]
     Active Substance: NAPROXEN
     Indication: Bone pain
     Dosage: ON REPEAT 10 YEARS, SMALL DOSE
     Route: 065

REACTIONS (6)
  - Multiple fractures [Unknown]
  - Bone non-union [Unknown]
  - Emotional distress [Unknown]
  - Pain [Unknown]
  - Diarrhoea [Unknown]
  - Product label issue [Unknown]
